FAERS Safety Report 4480455-7 (Version None)
Quarter: 2004Q4

REPORT INFORMATION
  Report Type: 
  Country: None (occurrence: None)
  Receive Date: 20041018
  Receipt Date: 20041004
  Transmission Date: 20050328
  Serious: Yes (Death)
  Sender: FDA-Public Use
  Company Number: S04-USA-06682-01

PATIENT
  Age: 28 Year
  Sex: Male

DRUGS (2)
  1. CELEXA [Suspect]
     Dosage: 40 MG QD PO
     Route: 048
     Dates: end: 20041004
  2. AZITHROMYCIN [Concomitant]

REACTIONS (2)
  - PNEUMONIA [None]
  - TOXICOLOGIC TEST ABNORMAL [None]
